FAERS Safety Report 22619014 (Version 3)
Quarter: 2024Q2

REPORT INFORMATION
  Report Type: Spontaneous
  Country: US (occurrence: US)
  Receive Date: 20230620
  Receipt Date: 20240621
  Transmission Date: 20240716
  Serious: No
  Sender: FDA-Public Use
  Company Number: US-AMGEN-USASP2023103354

PATIENT
  Age: 33 Year
  Sex: Female

DRUGS (1)
  1. REPATHA [Suspect]
     Active Substance: EVOLOCUMAB
     Indication: Type IIa hyperlipidaemia
     Dosage: 420 MILLIGRAM, QMO
     Route: 058

REACTIONS (3)
  - Drug dose omission by device [Unknown]
  - Maternal exposure during pregnancy [Unknown]
  - Device use error [Unknown]

NARRATIVE: CASE EVENT DATE: 20230613
